FAERS Safety Report 9048146 (Version 1)
Quarter: 2013Q1

REPORT INFORMATION
  Report Type: Spontaneous
  Country: DK (occurrence: DK)
  Receive Date: 20130204
  Receipt Date: 20130204
  Transmission Date: 20140127
  Serious: Yes (Hospitalization)
  Sender: FDA-Public Use
  Company Number: DK-009507513-1301DNK012263

PATIENT
  Sex: Female

DRUGS (2)
  1. MARVELON [Suspect]
     Indication: CONTRACEPTION
     Dosage: UNK
     Route: 048
     Dates: start: 200801
  2. MARVELON [Suspect]
     Dosage: UNK
     Route: 048
     Dates: start: 201008

REACTIONS (5)
  - Skin discolouration [Recovered/Resolved]
  - Local swelling [Not Recovered/Not Resolved]
  - Deep vein thrombosis [Recovered/Resolved with Sequelae]
  - Back pain [Recovered/Resolved]
  - Pain in extremity [Not Recovered/Not Resolved]
